FAERS Safety Report 8721925 (Version 2)
Quarter: 2012Q4

REPORT INFORMATION
  Report Type: 
  Country: MX (occurrence: MX)
  Receive Date: 20120814
  Receipt Date: 20120828
  Transmission Date: 20130627
  Serious: Yes (Death, Hospitalization)
  Sender: FDA-Public Use
  Company Number: PHHY2010MX75481

PATIENT
  Age: 82 None
  Sex: Male

DRUGS (4)
  1. STALEVO [Suspect]
     Indication: PARKINSON^S DISEASE
     Dosage: 3 DF, 3 tablets per day
     Route: 048
     Dates: start: 200601, end: 20120525
  2. SAXAGLIPTIN [Concomitant]
     Dosage: 1 DF, QD
     Route: 048
     Dates: start: 198306, end: 201205
  3. CLOPIDOGREL [Concomitant]
     Dosage: 1 DF, QD
     Route: 048
  4. ONBREZ [Concomitant]
     Dosage: 1 DF, QD

REACTIONS (6)
  - Pneumonia [Fatal]
  - Death [Fatal]
  - Head injury [Not Recovered/Not Resolved]
  - Fall [Not Recovered/Not Resolved]
  - Asthenia [Unknown]
  - Influenza [None]
